FAERS Safety Report 8471162-4 (Version None)
Quarter: 2012Q2

REPORT INFORMATION
  Report Type: 
  Country: None (occurrence: None)
  Receive Date: 20120627
  Receipt Date: 20120620
  Transmission Date: 20120825
  Serious: Yes (Hospitalization, Other)
  Sender: FDA-Public Use
  Company Number: US-PFIZER INC-2012000344

PATIENT
  Sex: Female

DRUGS (3)
  1. CHANTIX [Suspect]
     Indication: SMOKING CESSATION THERAPY
     Dosage: STARTER PACKS
     Dates: start: 20070301, end: 20081201
  2. ADVAIR DISKUS 100/50 [Concomitant]
     Indication: CHRONIC OBSTRUCTIVE PULMONARY DISEASE
     Dosage: UNK
     Dates: start: 20070101
  3. ADVAIR DISKUS 100/50 [Concomitant]
     Indication: EMPHYSEMA

REACTIONS (10)
  - ANXIETY [None]
  - FEELING ABNORMAL [None]
  - HOSTILITY [None]
  - LOSS OF CONSCIOUSNESS [None]
  - DEPRESSION [None]
  - THROMBOSIS [None]
  - PULMONARY THROMBOSIS [None]
  - THINKING ABNORMAL [None]
  - JOINT INJURY [None]
  - AGITATION [None]
